FAERS Safety Report 13116835 (Version 1)
Quarter: 2017Q1

REPORT INFORMATION
  Report Type: Spontaneous
  Country: US (occurrence: US)
  Receive Date: 20170116
  Receipt Date: 20170116
  Transmission Date: 20170428
  Serious: No
  Sender: FDA-Public Use
  Company Number: US-PFIZER INC-2017015235

PATIENT
  Age: 52 Year
  Sex: Female

DRUGS (1)
  1. GENOTROPIN MQ [Suspect]
     Active Substance: SOMATROPIN

REACTIONS (3)
  - Oropharyngeal pain [Unknown]
  - Nasal congestion [Unknown]
  - Headache [Unknown]
